APPROVED DRUG PRODUCT: THEOPHYLLINE
Active Ingredient: THEOPHYLLINE
Strength: 300MG
Dosage Form/Route: TABLET, EXTENDED RELEASE;ORAL
Application: A214113 | Product #001
Applicant: RHODES PHARMACEUTICALS LP
Approved: May 11, 2023 | RLD: No | RS: No | Type: DISCN